FAERS Safety Report 24593503 (Version 1)
Quarter: 2024Q4

REPORT INFORMATION
  Report Type: Spontaneous
  Country: CY (occurrence: CY)
  Receive Date: 20241108
  Receipt Date: 20241108
  Transmission Date: 20250115
  Serious: Yes (Other)
  Sender: BAYER HEALTHCARE PHARMACEUTICALS INC.
  Company Number: CY-BAYER-2024A159597

PATIENT
  Sex: Female

DRUGS (1)
  1. GADOBUTROL [Suspect]
     Active Substance: GADOBUTROL
     Indication: Magnetic resonance imaging abdominal
     Dosage: UNK, ONCE
     Route: 042
     Dates: start: 20241104, end: 20241104

REACTIONS (4)
  - Loss of consciousness [None]
  - Hypotension [None]
  - Apnoea [None]
  - Hyperhidrosis [None]

NARRATIVE: CASE EVENT DATE: 20241104
